FAERS Safety Report 5127916-5 (Version None)
Quarter: 2006Q4

REPORT INFORMATION
  Report Type: 
  Country: None (occurrence: None)
  Receive Date: 20061013
  Receipt Date: 20061013
  Transmission Date: 20070319
  Serious: Yes (Other)
  Sender: FDA-Public Use
  Company Number: None

PATIENT
  Age: 50 Year
  Sex: Female
  Weight: 67.1324 kg

DRUGS (1)
  1. NASONEX [Suspect]
     Indication: SEASONAL ALLERGY
     Dosage: 2 SPRAYS ONCE DAILY NASAL
     Route: 045
     Dates: start: 20060301, end: 20061008

REACTIONS (1)
  - ORAL FUNGAL INFECTION [None]
